FAERS Safety Report 6988622-5 (Version None)
Quarter: 2010Q3

REPORT INFORMATION
  Report Type: 
  Country: None (occurrence: None)
  Receive Date: 20100916
  Receipt Date: 20100908
  Transmission Date: 20110219
  Serious: Yes (Hospitalization)
  Sender: FDA-Public Use
  Company Number: US-US-EMD SERONO, INC.-7017234

PATIENT
  Sex: Female

DRUGS (2)
  1. REBIF [Suspect]
     Indication: MULTIPLE SCLEROSIS
  2. SOLU-MEDROL [Suspect]
     Indication: MULTIPLE SCLEROSIS RELAPSE

REACTIONS (2)
  - MANIA [None]
  - MULTIPLE SCLEROSIS RELAPSE [None]
